FAERS Safety Report 16790427 (Version 14)
Quarter: 2024Q1

REPORT INFORMATION
  Report Type: Spontaneous
  Country: US (occurrence: US)
  Receive Date: 20190910
  Receipt Date: 20240314
  Transmission Date: 20240410
  Serious: Yes (Other)
  Sender: FDA-Public Use
  Company Number: US-PFIZER INC-2019386833

PATIENT
  Age: 74 Year
  Sex: Female
  Weight: 81.65 kg

DRUGS (4)
  1. BOSULIF [Suspect]
     Active Substance: BOSUTINIB MONOHYDRATE
     Indication: Chronic myeloid leukaemia
     Dosage: 400 MG
  2. BOSULIF [Suspect]
     Active Substance: BOSUTINIB MONOHYDRATE
     Dosage: 100 MG DAILY (WITH FOOD)
     Route: 048
  3. BOSULIF [Suspect]
     Active Substance: BOSUTINIB MONOHYDRATE
     Dosage: 100 MG
  4. BOSULIF [Suspect]
     Active Substance: BOSUTINIB MONOHYDRATE
     Dosage: 300 MG, DAILY (TAKE THREE 100MG TABLETS PER DAY TAKE WITH BREAKFAST)
     Dates: start: 2019, end: 202211

REACTIONS (6)
  - COVID-19 [Unknown]
  - Diarrhoea [Unknown]
  - Body height decreased [Not Recovered/Not Resolved]
  - Drug intolerance [Recovered/Resolved]
  - Anxiety [Unknown]
  - Influenza [Unknown]
